FAERS Safety Report 17766457 (Version 3)
Quarter: 2021Q1

REPORT INFORMATION
  Report Type: Report from Study
  Country: BE (occurrence: BE)
  Receive Date: 20200511
  Receipt Date: 20210208
  Transmission Date: 20210419
  Serious: Yes (Hospitalization)
  Sender: FDA-Public Use
  Company Number: BE-PFIZER INC-2020185819

PATIENT
  Age: 60 Year
  Sex: Female
  Weight: 73 kg

DRUGS (8)
  1. CISPLATIN. [Suspect]
     Active Substance: CISPLATIN
     Dosage: 123 MG, ONCE EVERY 3 WEEKS
     Route: 042
     Dates: start: 20200417
  2. TINZAPARIN [Concomitant]
     Active Substance: TINZAPARIN
     Dosage: 13000 UI
     Route: 058
     Dates: start: 20200424
  3. AVELUMAB [Suspect]
     Active Substance: AVELUMAB
     Indication: BLADDER TRANSITIONAL CELL CARCINOMA
     Dosage: 760 MG, ONCE EVERY TWO WEEKS
     Route: 042
     Dates: start: 20200305
  4. GEMCITABINE HYDROCHLORIDE. [Suspect]
     Active Substance: GEMCITABINE HYDROCHLORIDE
     Dosage: 1720 MG, ONCE EVERY 3 WEEKS
     Route: 042
     Dates: start: 20200424
  5. CISPLATIN. [Suspect]
     Active Substance: CISPLATIN
     Indication: BLADDER TRANSITIONAL CELL CARCINOMA
     Dosage: 123 MG, ONCE EVERY 3 WEEKS
     Route: 042
     Dates: start: 20200305
  6. TINZAPARIN [Concomitant]
     Active Substance: TINZAPARIN
     Indication: DEEP VEIN THROMBOSIS
     Dosage: 14000 UI
     Route: 058
     Dates: start: 20200417, end: 20200424
  7. AVELUMAB [Suspect]
     Active Substance: AVELUMAB
     Dosage: 760 MG, ONCE EVERY TWO WEEKS
     Route: 042
     Dates: start: 20200417
  8. GEMCITABINE HYDROCHLORIDE. [Suspect]
     Active Substance: GEMCITABINE HYDROCHLORIDE
     Indication: BLADDER TRANSITIONAL CELL CARCINOMA
     Dosage: 1720 MG, ONCE EVERY 3 WEEKS
     Route: 042
     Dates: start: 20200305

REACTIONS (1)
  - Pulmonary embolism [Recovered/Resolved]

NARRATIVE: CASE EVENT DATE: 20200424
